FAERS Safety Report 6687420-X (Version None)
Quarter: 2010Q2

REPORT INFORMATION
  Report Type: 
  Country: None (occurrence: None)
  Receive Date: 20100419
  Receipt Date: 20100409
  Transmission Date: 20101027
  Serious: Yes (Hospitalization)
  Sender: FDA-Public Use
  Company Number: BR-ABBOTT-10P-020-0637639-00

PATIENT
  Sex: Female
  Weight: 40 kg

DRUGS (3)
  1. SYNTHROID [Suspect]
     Indication: HYPOTHYROIDISM
     Route: 048
     Dates: start: 20080903
  2. SYNTHROID [Suspect]
     Route: 048
  3. PURAN T4 [Concomitant]
     Indication: HYPOTHYROIDISM

REACTIONS (2)
  - LEUKOPENIA [None]
  - PNEUMONIA [None]
